FAERS Safety Report 7413522-6 (Version None)
Quarter: 2011Q2

REPORT INFORMATION
  Report Type: 
  Country: None (occurrence: None)
  Receive Date: 20110413
  Receipt Date: 20110223
  Transmission Date: 20111010
  Serious: Yes (Other)
  Sender: FDA-Public Use
  Company Number: PHHY2010BR47186

PATIENT
  Sex: Female
  Weight: 60.2 kg

DRUGS (5)
  1. FORASEQ [Suspect]
     Indication: BRONCHITIS CHRONIC
     Dosage: 1 CAPSULE OF EACH TREATMENT EVERY 12 HOURS
     Dates: start: 20100618, end: 20100628
  2. ARADOIS [Concomitant]
     Indication: CARDIAC DISORDER
     Dosage: 1 TABLET/DAY
     Dates: start: 20100601
  3. CARVEDILOL [Concomitant]
     Indication: CARDIAC DISORDER
     Dosage: 1 DF, BID
     Dates: start: 20100601
  4. FORASEQ [Suspect]
     Indication: ASTHMA
     Dosage: 1 CAPSULE OF EACH TREATMENT EVERY 12 HOURS
     Dates: start: 20100705
  5. MAREVAN [Concomitant]
     Dosage: 1 TABLET/DAY

REACTIONS (5)
  - INCREASED BRONCHIAL SECRETION [None]
  - DYSPNOEA [None]
  - INFLUENZA [None]
  - WEIGHT DECREASED [None]
  - COUGH [None]
